FAERS Safety Report 6527281-2 (Version None)
Quarter: 2010Q1

REPORT INFORMATION
  Report Type: 
  Country: None (occurrence: None)
  Receive Date: 20100105
  Receipt Date: 20091217
  Transmission Date: 20100710
  Serious: Yes (Hospitalization)
  Sender: FDA-Public Use
  Company Number: AU-GENENTECH-296433

PATIENT
  Sex: Male
  Weight: 81 kg

DRUGS (6)
  1. RANIBIZUMAB [Suspect]
     Indication: DIABETIC RETINAL OEDEMA
     Dosage: UNK
     Route: 031
     Dates: start: 20081023, end: 20090324
  2. CADUET [Concomitant]
     Indication: DRUG USE FOR UNKNOWN INDICATION
  3. ATENOLOL [Concomitant]
     Indication: DRUG USE FOR UNKNOWN INDICATION
  4. AVAPRO [Concomitant]
     Indication: DRUG USE FOR UNKNOWN INDICATION
  5. METFORMIN HCL [Concomitant]
     Indication: DRUG USE FOR UNKNOWN INDICATION
  6. DIAMICRON [Concomitant]
     Indication: DRUG USE FOR UNKNOWN INDICATION

REACTIONS (1)
  - HAEMORRHAGIC STROKE [None]
